FAERS Safety Report 5340800-7 (Version None)
Quarter: 2007Q2

REPORT INFORMATION
  Report Type: 
  Country: None (occurrence: None)
  Receive Date: 20070405
  Receipt Date: 20070131
  Transmission Date: 20071010
  Serious: No
  Sender: FDA-Public Use
  Company Number: US200702000072

PATIENT
  Sex: Female

DRUGS (7)
  1. CYMBALTA [Suspect]
     Indication: BACK PAIN
     Dosage: SEE IMAGE
     Dates: start: 20061201
  2. TRILEPTAL [Concomitant]
  3. PHENOBARBITAL (PHENOBARBITAL) SOLUTION [Concomitant]
  4. KLONOPIN [Concomitant]
  5. DEMEROL [Concomitant]
  6. MORPHINE [Concomitant]
  7. VICODIN [Concomitant]

REACTIONS (6)
  - BLOOD PRESSURE INCREASED [None]
  - DRY MOUTH [None]
  - DYSPEPSIA [None]
  - FEELING ABNORMAL [None]
  - PANIC ATTACK [None]
  - PSYCHOMOTOR HYPERACTIVITY [None]
